FAERS Safety Report 8157725-4 (Version None)
Quarter: 2012Q1

REPORT INFORMATION
  Report Type: 
  Country: None (occurrence: None)
  Receive Date: 20120222
  Receipt Date: 20120219
  Transmission Date: 20120608
  Serious: No
  Sender: FDA-Public Use
  Company Number: US-B.I. PHARMACEUTICALS,INC./RIDGEFIELD-2012-BP-03178BP

PATIENT
  Sex: Female

DRUGS (3)
  1. METFORMIN HCL [Concomitant]
     Indication: DIABETES MELLITUS INADEQUATE CONTROL
     Route: 048
  2. GLYBURIDE [Concomitant]
     Indication: DIABETES MELLITUS INADEQUATE CONTROL
     Route: 048
  3. TRADJENTA [Suspect]
     Indication: DIABETES MELLITUS INADEQUATE CONTROL
     Dosage: 10 MG
     Route: 048
     Dates: start: 20120215

REACTIONS (2)
  - IRRITABILITY [None]
  - NERVOUSNESS [None]
